FAERS Safety Report 6922569-5 (Version None)
Quarter: 2010Q3

REPORT INFORMATION
  Report Type: 
  Country: None (occurrence: None)
  Receive Date: 20100811
  Receipt Date: 20100729
  Transmission Date: 20110219
  Serious: Yes (Hospitalization)
  Sender: FDA-Public Use
  Company Number: 016532

PATIENT
  Sex: Female
  Weight: 62.6 kg

DRUGS (1)
  1. CIMZIA [Suspect]
     Indication: CROHN'S DISEASE
     Dosage: (SUBCUTANEOUS)
     Route: 058
     Dates: end: 20100501

REACTIONS (4)
  - IMPAIRED HEALING [None]
  - INTESTINAL OPERATION [None]
  - OPEN WOUND [None]
  - WOUND INFECTION [None]
